FAERS Safety Report 8152184 (Version 2)
Quarter: 2013Q1

REPORT INFORMATION
  Report Type: Spontaneous
  Country: US (occurrence: US)
  Receive Date: 20110922
  Receipt Date: 20130212
  Transmission Date: 20140127
  Serious: No
  Sender: FDA-Public Use
  Company Number: US-ASTRAZENECA-2011SE41400

PATIENT
  Age: 25 Year
  Sex: Male
  Weight: 190 kg

DRUGS (5)
  1. SEROQUEL [Suspect]
     Indication: BIPOLAR DISORDER
     Route: 048
     Dates: start: 2002
  2. SEROQUEL [Suspect]
     Indication: BIPOLAR DISORDER
     Route: 048
     Dates: start: 2003
  3. SEROQUEL [Suspect]
     Indication: BIPOLAR DISORDER
     Dosage: GENERIC, 600 MG, AT NIGHT
     Route: 048
     Dates: start: 201204
  4. LAMICTAL [Concomitant]
     Indication: BIPOLAR DISORDER
     Dates: start: 2002
  5. ABILIFY [Concomitant]
     Indication: BIPOLAR DISORDER
     Dates: start: 2008

REACTIONS (5)
  - Hyperhidrosis [Unknown]
  - Dermatitis acneiform [Unknown]
  - Insomnia [Unknown]
  - Mania [Unknown]
  - Therapeutic response decreased [Unknown]
